FAERS Safety Report 7396823-X (Version None)
Quarter: 2011Q1

REPORT INFORMATION
  Report Type: 
  Country: None (occurrence: None)
  Receive Date: 20110331
  Receipt Date: 20110331
  Transmission Date: 20110831
  Serious: Yes (Other)
  Sender: FDA-Public Use
  Company Number: None

PATIENT
  Sex: Female
  Weight: 76.4 kg

DRUGS (2)
  1. AVELOX [Suspect]
     Indication: BRONCHITIS
     Dosage: 400MGS. 3X DAY
     Dates: start: 20110303
  2. AVELOX [Suspect]
     Indication: BRONCHITIS
     Dosage: 400MGS. 3X DAY
     Dates: start: 20110304

REACTIONS (3)
  - SENSORY DISTURBANCE [None]
  - DIZZINESS [None]
  - HYPOAESTHESIA [None]
